FAERS Safety Report 8816925 (Version 1)
Quarter: 2012Q4

REPORT INFORMATION
  Report Type: Spontaneous
  Country: GB (occurrence: None)
  Receive Date: 20121002
  Receipt Date: 20121002
  Transmission Date: 20130627
  Serious: Yes (Hospitalization, Other)
  Sender: FDA-Public Use
  Company Number: 2012MA011548

PATIENT
  Age: 56 Year
  Sex: Female
  Weight: 60 kg

DRUGS (1)
  1. VERAPAMIL HYDROCHLORIDE [Suspect]
     Indication: INTENTIONAL OVERDOSE
     Route: 048

REACTIONS (10)
  - Sinus bradycardia [None]
  - Electrocardiogram PR prolongation [None]
  - Overdose [None]
  - Dizziness [None]
  - Confusional state [None]
  - Blood pressure decreased [None]
  - Nodal rhythm [None]
  - Somnolence [None]
  - Toxicity to various agents [None]
  - Blood glucose abnormal [None]
